FAERS Safety Report 5147521-4 (Version None)
Quarter: 2006Q4

REPORT INFORMATION
  Report Type: 
  Country: None (occurrence: None)
  Receive Date: 20061109
  Receipt Date: 20061030
  Transmission Date: 20070319
  Serious: Yes (Hospitalization)
  Sender: FDA-Public Use
  Company Number: GB-ABBOTT-06P-167-0348646-00

PATIENT
  Age: 48 Year
  Sex: Female

DRUGS (4)
  1. KALETRA [Suspect]
     Indication: HIV INFECTION
     Dates: start: 20010101
  2. NORVIR [Suspect]
     Indication: HIV INFECTION
     Dates: start: 20060608
  3. ATAZANAVIR SULPHATE [Suspect]
     Indication: HIV INFECTION
     Route: 048
     Dates: start: 20060608
  4. TENOFOVIR DISOPROXIL W/ EMTRICITAINE [Suspect]
     Indication: HIV INFECTION
     Dates: start: 20060101

REACTIONS (2)
  - CONDUCTION DISORDER [None]
  - PETIT MAL EPILEPSY [None]
